FAERS Safety Report 11730784 (Version 1)
Quarter: 2015Q4

REPORT INFORMATION
  Report Type: Spontaneous
  Country: US (occurrence: US)
  Receive Date: 20151110
  Receipt Date: 20151110
  Transmission Date: 20160304
  Serious: No
  Sender: FDA-Public Use
  Company Number: US-ELI_LILLY_AND_COMPANY-US201202001745

PATIENT
  Age: 54 Year
  Sex: Male

DRUGS (2)
  1. FORTEO [Suspect]
     Active Substance: TERIPARATIDE
     Indication: OSTEOPOROSIS
     Dosage: 20 UG, QD
  2. FORTEO [Suspect]
     Active Substance: TERIPARATIDE
     Dosage: 20 UG, QD

REACTIONS (6)
  - Contusion [Unknown]
  - Dyspnoea [Unknown]
  - Fall [Unknown]
  - Bone disorder [Unknown]
  - Inflammation [Unknown]
  - Body height decreased [Unknown]

NARRATIVE: CASE EVENT DATE: 20120128
